FAERS Safety Report 10159315 (Version 2)
Quarter: 2014Q3

REPORT INFORMATION
  Report Type: Spontaneous
  Country: BR (occurrence: BR)
  Receive Date: 20140508
  Receipt Date: 20140804
  Transmission Date: 20150326
  Serious: Yes (Hospitalization)
  Sender: FDA-Public Use
  Company Number: BR-SA-2014SA056716

PATIENT
  Sex: Female

DRUGS (1)
  1. CEREZYME [Suspect]
     Active Substance: IMIGLUCERASE
     Indication: GAUCHER^S DISEASE
     Dosage: PRODUCT STARTED MORE THAN 15 YEARS AGO
     Route: 042

REACTIONS (6)
  - Gallbladder operation [Unknown]
  - Hernia repair [Unknown]
  - Coagulopathy [Unknown]
  - Anaemia [Unknown]
  - Unevaluable event [Unknown]
  - Yellow skin [Unknown]
